FAERS Safety Report 22176087 (Version 1)
Quarter: 2023Q2

REPORT INFORMATION
  Report Type: Spontaneous
  Country: US (occurrence: US)
  Receive Date: 20230405
  Receipt Date: 20230405
  Transmission Date: 20230722
  Serious: Yes (Hospitalization)
  Sender: FDA-Public Use
  Company Number: US-drreddys-LIT/USA/23/0163195

PATIENT
  Age: 63 Year
  Sex: Male

DRUGS (16)
  1. LORAZEPAM [Suspect]
     Active Substance: LORAZEPAM
     Indication: Product used for unknown indication
  2. ISONIAZID [Suspect]
     Active Substance: ISONIAZID
     Indication: Latent tuberculosis
  3. ATAZANAVIR [Suspect]
     Active Substance: ATAZANAVIR
     Indication: HIV infection
  4. ABACAVIR [Suspect]
     Active Substance: ABACAVIR
     Indication: HIV infection
  5. TENOFOVIR [Suspect]
     Active Substance: TENOFOVIR
     Indication: HIV infection
  6. EMTRICITABINE [Suspect]
     Active Substance: EMTRICITABINE
     Indication: HIV infection
  7. RITONAVIR [Suspect]
     Active Substance: RITONAVIR
     Indication: HIV infection
  8. NIACIN [Suspect]
     Active Substance: NIACIN
     Indication: Product used for unknown indication
  9. ASPIRIN [Suspect]
     Active Substance: ASPIRIN
     Indication: Product used for unknown indication
  10. FISH OIL [Suspect]
     Active Substance: FISH OIL
     Indication: Product used for unknown indication
  11. LEVOCARNITINE [Suspect]
     Active Substance: LEVOCARNITINE
     Indication: Product used for unknown indication
  12. HERBALS\SPIRULINA [Suspect]
     Active Substance: HERBALS\SPIRULINA
     Indication: Product used for unknown indication
  13. VITAMIN B6 [Suspect]
     Active Substance: PYRIDOXINE HYDROCHLORIDE
     Indication: Product used for unknown indication
  14. VITAMIN C [Suspect]
     Active Substance: ASCORBIC ACID
     Indication: Product used for unknown indication
  15. VITAMIN D [Suspect]
     Active Substance: VITAMIN D NOS
     Indication: Product used for unknown indication
  16. VITAMIN E [Suspect]
     Active Substance: .ALPHA.-TOCOPHEROL
     Indication: Product used for unknown indication

REACTIONS (4)
  - Drug-induced liver injury [Unknown]
  - Hepatitis E virus test positive [Unknown]
  - Splenomegaly [Unknown]
  - Hepatic steatosis [Unknown]
